FAERS Safety Report 8225051-0 (Version None)
Quarter: 2012Q1

REPORT INFORMATION
  Report Type: 
  Country: None (occurrence: None)
  Receive Date: 20120321
  Receipt Date: 20120308
  Transmission Date: 20120608
  Serious: Yes (Other)
  Sender: FDA-Public Use
  Company Number: IT-ROCHE-1050760

PATIENT

DRUGS (2)
  1. HERCEPTIN [Suspect]
     Indication: BREAST CANCER
     Dates: start: 20080309, end: 20091215
  2. FEMARA [Concomitant]

REACTIONS (6)
  - HYPERTENSIVE HEART DISEASE [None]
  - TACHYCARDIA [None]
  - HYPERTENSION [None]
  - ORTHOPNOEA [None]
  - PLEURAL EFFUSION [None]
  - DYSPNOEA [None]
